FAERS Safety Report 11939811 (Version 2)
Quarter: 2016Q1

REPORT INFORMATION
  Report Type: Spontaneous
  Country: FR (occurrence: FR)
  Receive Date: 20160122
  Receipt Date: 20160129
  Transmission Date: 20160526
  Serious: Yes (Other)
  Sender: FDA-Public Use
  Company Number: FR-ASTRAZENECA-2016SE06073

PATIENT
  Age: 80 Year
  Sex: Female

DRUGS (13)
  1. GALVUS [Suspect]
     Active Substance: VILDAGLIPTIN
     Indication: TYPE 2 DIABETES MELLITUS
     Route: 048
     Dates: start: 20151205, end: 20151217
  2. KARDEGIC [Concomitant]
     Active Substance: ASPIRIN LYSINE
  3. XANAX [Suspect]
     Active Substance: ALPRAZOLAM
     Indication: ANXIETY
     Route: 048
     Dates: start: 20151207, end: 20151217
  4. LASILIX [Suspect]
     Active Substance: FUROSEMIDE
     Indication: ACUTE PULMONARY OEDEMA
     Route: 042
  5. MOTILIUM [Concomitant]
     Active Substance: DOMPERIDONE
  6. LEXOMIL [Concomitant]
     Active Substance: BROMAZEPAM
     Dosage: ROCHE
  7. EFFEXOR [Suspect]
     Active Substance: VENLAFAXINE HYDROCHLORIDE
     Indication: ANXIETY
     Route: 048
     Dates: start: 20151211, end: 20151217
  8. COUMADINE [Suspect]
     Active Substance: WARFARIN SODIUM
     Indication: PULMONARY EMBOLISM
     Route: 048
     Dates: start: 20151209, end: 20151214
  9. LEVOTHYROX [Concomitant]
     Active Substance: LEVOTHYROXINE
  10. LASILIX [Suspect]
     Active Substance: FUROSEMIDE
     Indication: ACUTE PULMONARY OEDEMA
     Route: 042
  11. PARIET [Concomitant]
     Active Substance: RABEPRAZOLE SODIUM
  12. INEXIUM [Suspect]
     Active Substance: ESOMEPRAZOLE
     Indication: ABDOMINAL PAIN UPPER
     Route: 048
     Dates: start: 20151209, end: 20151217
  13. GAVISCON [Concomitant]
     Active Substance: ALUMINUM HYDROXIDE\MAGNESIUM CARBONATE

REACTIONS (10)
  - Hepatitis [Recovering/Resolving]
  - Pleural effusion [Unknown]
  - Alanine aminotransferase increased [Unknown]
  - Portal vein dilatation [Unknown]
  - Cardiac cirrhosis [Unknown]
  - Ascites [Unknown]
  - Aspartate aminotransferase increased [Unknown]
  - Dilatation ventricular [Unknown]
  - Hepatitis A antibody positive [Unknown]
  - Gamma-glutamyltransferase increased [Unknown]

NARRATIVE: CASE EVENT DATE: 20151217
